FAERS Safety Report 12356996 (Version 1)
Quarter: 2016Q2

REPORT INFORMATION
  Report Type: Spontaneous
  Country: DE (occurrence: DE)
  Receive Date: 20160511
  Receipt Date: 20160511
  Transmission Date: 20160815
  Serious: Yes (Hospitalization)
  Sender: FDA-Public Use
  Company Number: PHHY2016DE064425

PATIENT
  Age: 67 Year
  Sex: Male

DRUGS (2)
  1. SOFOSBUVIR [Suspect]
     Active Substance: SOFOSBUVIR
     Indication: CHRONIC HEPATITIS C
     Dosage: 400 MG, QD
     Route: 048
  2. RIBAVIRIN. [Suspect]
     Active Substance: RIBAVIRIN
     Indication: CHRONIC HEPATITIS C
     Dosage: 200 MG TO 1200 MG PER DAY
     Route: 048

REACTIONS (6)
  - Bacterial infection [Unknown]
  - Renal failure [Unknown]
  - Pneumonia [Unknown]
  - Incarcerated hernia [Unknown]
  - Diarrhoea [Unknown]
  - Lactic acidosis [Unknown]
